FAERS Safety Report 24070265 (Version 1)
Quarter: 2024Q3

REPORT INFORMATION
  Report Type: Report from Study
  Country: RO (occurrence: RO)
  Receive Date: 20240710
  Receipt Date: 20240710
  Transmission Date: 20241016
  Serious: No
  Sender: ROCHE
  Company Number: RO-ROCHE-3274923

PATIENT
  Age: 73 Year
  Sex: Female
  Weight: 75.0 kg

DRUGS (8)
  1. ALECTINIB [Suspect]
     Active Substance: ALECTINIB
     Indication: Non-small cell lung cancer
     Route: 048
     Dates: start: 20200605
  2. ALECTINIB [Suspect]
     Active Substance: ALECTINIB
     Route: 048
     Dates: start: 20220928
  3. DIOSMINUM [Concomitant]
     Route: 048
     Dates: start: 20220511
  4. ASPIRIN [Concomitant]
     Active Substance: ASPIRIN
     Route: 048
     Dates: start: 20220511
  5. BISOPROLOL [Concomitant]
     Active Substance: BISOPROLOL\BISOPROLOL FUMARATE
     Indication: Hypertension
     Route: 048
     Dates: start: 20220511
  6. ENALAPRIL [Concomitant]
     Active Substance: ENALAPRIL
     Route: 048
     Dates: start: 20220511
  7. INDAPAMIDE [Concomitant]
     Active Substance: INDAPAMIDE
     Route: 048
     Dates: start: 20220511
  8. TRIMETAZIDINUM [Concomitant]
     Route: 048
     Dates: start: 20220511

REACTIONS (1)
  - Anaemia [Recovered/Resolved]

NARRATIVE: CASE EVENT DATE: 20221004
